FAERS Safety Report 9892682 (Version 1)
Quarter: 2014Q1

REPORT INFORMATION
  Report Type: Spontaneous
  Country: US (occurrence: US)
  Receive Date: 20140212
  Receipt Date: 20140212
  Transmission Date: 20141002
  Serious: Yes (Death, Other)
  Sender: FDA-Public Use
  Company Number: US-BAXTER-2014BAX006895

PATIENT
  Age: 86 Year
  Sex: Female

DRUGS (4)
  1. METRONIDAZOLE INJECTION, USP RTU? [Suspect]
     Indication: PRODUCT USED FOR UNKNOWN INDICATION
     Route: 065
  2. FLUCONAZOLE INJECTION, USP [Suspect]
     Indication: FUNGAL INFECTION
     Route: 065
  3. NYSTATIN [Suspect]
     Indication: FUNGAL INFECTION
     Route: 048
  4. VORICONAZOLE [Suspect]
     Indication: ASPERGILLUS INFECTION
     Route: 042

REACTIONS (4)
  - Dysphagia [Unknown]
  - Aspergillus infection [Unknown]
  - Drug ineffective [Unknown]
  - Sepsis [Fatal]
